FAERS Safety Report 5177209-5 (Version None)
Quarter: 2006Q4

REPORT INFORMATION
  Report Type: 
  Country: None (occurrence: None)
  Receive Date: 20061218
  Receipt Date: 20061205
  Transmission Date: 20070319
  Serious: Yes (Life-Threatening)
  Sender: FDA-Public Use
  Company Number: DE-ELI_LILLY_AND_COMPANY-DE200612001367

PATIENT
  Sex: Female

DRUGS (2)
  1. CYMBALTA [Suspect]
     Route: 048
  2. OPIUM ALKALOIDS AND DERIVATIVES [Concomitant]

REACTIONS (3)
  - DRUG INTERACTION [None]
  - DRUG LEVEL INCREASED [None]
  - RESPIRATORY ARREST [None]
